FAERS Safety Report 15136709 (Version 1)
Quarter: 2018Q3

REPORT INFORMATION
  Report Type: Spontaneous
  Country: AT (occurrence: AT)
  Receive Date: 20180712
  Receipt Date: 20180712
  Transmission Date: 20181010
  Serious: Yes (Hospitalization)
  Sender: FDA-Public Use
  Company Number: AT-US WORLDMEDS, LLC-STA_00017578

PATIENT
  Sex: Female
  Weight: 52 kg

DRUGS (5)
  1. APOMORPHINE HYDROCHLORIDE [Suspect]
     Active Substance: APOMORPHINE HYDROCHLORIDE
     Indication: PARKINSON^S DISEASE
     Route: 058
     Dates: start: 20141006, end: 20150615
  2. MADOPAR 200MG [Concomitant]
  3. SIFROL 1,05MG [Concomitant]
  4. AZILECT [Concomitant]
     Active Substance: RASAGILINE MESYLATE
  5. EUTHYRO 75 [Concomitant]

REACTIONS (3)
  - Injection site nodule [Not Recovered/Not Resolved]
  - Camptocormia [Not Recovered/Not Resolved]
  - Drug ineffective [Unknown]
